FAERS Safety Report 20512304 (Version 2)
Quarter: 2022Q3

REPORT INFORMATION
  Report Type: Spontaneous
  Country: US (occurrence: None)
  Receive Date: 20220224
  Receipt Date: 20220914
  Transmission Date: 20221027
  Serious: Yes (Other)
  Sender: FDA-Public Use
  Company Number: 2022A076695

PATIENT
  Age: 72 Year
  Sex: Female
  Weight: 74.4 kg

DRUGS (45)
  1. NEXIUM [Suspect]
     Active Substance: ESOMEPRAZOLE MAGNESIUM
     Indication: Gastrooesophageal reflux disease
     Route: 065
     Dates: start: 2017, end: 2018
  2. NEXIUM [Suspect]
     Active Substance: ESOMEPRAZOLE MAGNESIUM
     Indication: Gastrooesophageal reflux disease
     Route: 065
     Dates: start: 2017, end: 2018
  3. NEXIUM [Suspect]
     Active Substance: ESOMEPRAZOLE MAGNESIUM
     Indication: Gastrooesophageal reflux disease
     Route: 065
     Dates: start: 2001, end: 2018
  4. NEXIUM [Suspect]
     Active Substance: ESOMEPRAZOLE MAGNESIUM
     Indication: Gastrooesophageal reflux disease
     Route: 065
     Dates: start: 2001, end: 2018
  5. NEXIUM [Suspect]
     Active Substance: ESOMEPRAZOLE MAGNESIUM
     Indication: Gastrooesophageal reflux disease
     Route: 065
     Dates: start: 2015, end: 2018
  6. NEXIUM [Suspect]
     Active Substance: ESOMEPRAZOLE MAGNESIUM
     Indication: Gastrooesophageal reflux disease
     Route: 065
     Dates: start: 2015, end: 2018
  7. PRILOSEC [Suspect]
     Active Substance: OMEPRAZOLE MAGNESIUM
     Indication: Gastrooesophageal reflux disease
     Route: 048
  8. PRILOSEC [Suspect]
     Active Substance: OMEPRAZOLE MAGNESIUM
     Indication: Gastrooesophageal reflux disease
     Route: 048
  9. PRILOSEC OTC [Suspect]
     Active Substance: OMEPRAZOLE MAGNESIUM
     Indication: Gastrooesophageal reflux disease
     Route: 048
     Dates: start: 2003, end: 2018
  10. PRILOSEC OTC [Suspect]
     Active Substance: OMEPRAZOLE MAGNESIUM
     Indication: Gastrooesophageal reflux disease
     Route: 048
     Dates: start: 2003, end: 2018
  11. PREVACID [Suspect]
     Active Substance: LANSOPRAZOLE
     Indication: Gastrooesophageal reflux disease
     Route: 065
  12. PREVACID [Suspect]
     Active Substance: LANSOPRAZOLE
     Indication: Gastrooesophageal reflux disease
     Route: 065
  13. PROTONIX [Suspect]
     Active Substance: PANTOPRAZOLE SODIUM
     Indication: Gastrooesophageal reflux disease
     Route: 065
     Dates: start: 2014, end: 2015
  14. PROTONIX [Suspect]
     Active Substance: PANTOPRAZOLE SODIUM
     Indication: Gastrooesophageal reflux disease
     Route: 065
     Dates: start: 2014, end: 2015
  15. DICLOFENAC [Concomitant]
     Active Substance: DICLOFENAC
     Indication: Pain
  16. MELOXICAM [Concomitant]
     Active Substance: MELOXICAM
     Indication: Pain
  17. MOBIC [Concomitant]
     Active Substance: MELOXICAM
     Indication: Pain
  18. NAPROXEN [Concomitant]
     Active Substance: NAPROXEN
     Indication: Pain
  19. TRAMADOL [Concomitant]
     Active Substance: TRAMADOL
     Indication: Pain
  20. ULTRAM [Concomitant]
     Active Substance: TRAMADOL HYDROCHLORIDE
     Indication: Pain
  21. ACYCLOVIR [Concomitant]
     Active Substance: ACYCLOVIR
     Indication: Infection
  22. ZOVIRAX [Concomitant]
     Active Substance: ACYCLOVIR
     Indication: Infection
  23. AZITHROMYCIN [Concomitant]
     Active Substance: AZITHROMYCIN
     Indication: Infection
  24. LEVOFLOXACIN [Concomitant]
     Active Substance: LEVOFLOXACIN
     Indication: Infection
  25. LISINOPRIL [Concomitant]
     Active Substance: LISINOPRIL
     Indication: Blood pressure abnormal
  26. LISINOPRIL [Concomitant]
     Active Substance: LISINOPRIL
     Indication: Blood pressure abnormal
  27. LIPITOR [Concomitant]
     Active Substance: ATORVASTATIN CALCIUM
     Indication: Blood cholesterol
  28. BENADRYL [Concomitant]
     Active Substance: DIPHENHYDRAMINE HYDROCHLORIDE
     Indication: Multiple allergies
  29. FAMOTIDINE [Concomitant]
     Active Substance: FAMOTIDINE
     Indication: Multiple allergies
  30. ZENTAC [Concomitant]
     Indication: Multiple allergies
  31. ESTRACE [Concomitant]
     Active Substance: ESTRADIOL
  32. CIPROFLOXACIN [Concomitant]
     Active Substance: CIPROFLOXACIN
  33. CYCLOBENZAPRINE [Concomitant]
     Active Substance: CYCLOBENZAPRINE
  34. ACETAMINOPHEN\DICHLORALPHENAZONE\ISOMETHEPTENE MUCATE [Concomitant]
     Active Substance: ACETAMINOPHEN\DICHLORALPHENAZONE\ISOMETHEPTENE MUCATE
  35. AUGMENTIN [Concomitant]
     Active Substance: AMOXICILLIN\CLAVULANATE POTASSIUM
  36. ALPRAZOLAM [Concomitant]
     Active Substance: ALPRAZOLAM
  37. TRIMOX [Concomitant]
     Active Substance: AMOXICILLIN
  38. GENTAMICIN [Concomitant]
     Active Substance: GENTAMICIN
  39. GABAPENTIN [Concomitant]
     Active Substance: GABAPENTIN
  40. TRAMADOL [Concomitant]
     Active Substance: TRAMADOL
  41. PREDNISONE [Concomitant]
     Active Substance: PREDNISONE
  42. LIDODERM [Concomitant]
     Active Substance: LIDOCAINE
  43. NYSTATIN [Concomitant]
     Active Substance: NYSTATIN
  44. AZELASTINE [Concomitant]
     Active Substance: AZELASTINE
  45. AMOXICILLIN [Concomitant]
     Active Substance: AMOXICILLIN

REACTIONS (2)
  - Acute kidney injury [Not Recovered/Not Resolved]
  - Renal failure [Unknown]

NARRATIVE: CASE EVENT DATE: 20180101
